FAERS Safety Report 7230984-8 (Version None)
Quarter: 2011Q1

REPORT INFORMATION
  Report Type: 
  Country: None (occurrence: None)
  Receive Date: 20110118
  Receipt Date: 20101223
  Transmission Date: 20110831
  Serious: Yes (Death, Hospitalization)
  Sender: FDA-Public Use
  Company Number: IT-AMGEN-ITASP2010000436

PATIENT

DRUGS (1)
  1. ENBREL [Suspect]
     Indication: PSORIASIS
     Dosage: 50 MG WEEKLY
     Route: 058
     Dates: start: 20031006, end: 20100908

REACTIONS (2)
  - ACUTE MYELOID LEUKAEMIA [None]
  - HAEMORRHAGE [None]
